FAERS Safety Report 14784998 (Version 3)
Quarter: 2018Q2

REPORT INFORMATION
  Report Type: Spontaneous
  Country: PL (occurrence: PL)
  Receive Date: 20180420
  Receipt Date: 20180507
  Transmission Date: 20180711
  Serious: Yes (Other)
  Sender: FDA-Public Use
  Company Number: PL-PFIZER INC-2018060997

PATIENT
  Sex: Female

DRUGS (2)
  1. NORVASC [Suspect]
     Active Substance: AMLODIPINE BESYLATE
     Dosage: 5 MG, ONCE A DAY
  2. METYPRED [Suspect]
     Active Substance: METHYLPREDNISOLONE
     Dosage: 4 MG, ONCE A DAY (SOMETIMES EVERY TWO DAYS)

REACTIONS (5)
  - Blood pressure increased [Recovering/Resolving]
  - Pollakiuria [Recovering/Resolving]
  - Blood glucose increased [Recovered/Resolved]
  - Contusion [Not Recovered/Not Resolved]
  - Malaise [Unknown]

NARRATIVE: CASE EVENT DATE: 201802
